FAERS Safety Report 15208440 (Version 1)
Quarter: 2018Q4

REPORT INFORMATION
  Report Type: Spontaneous
  Country: DE (occurrence: DE)
  Receive Date: 20180727
  Receipt Date: 20180727
  Transmission Date: 20190204
  Serious: Yes (Hospitalization)
  Sender: FDA-Public Use
  Company Number: PHHY2018DE055679

PATIENT
  Age: 23 Year
  Sex: Female
  Weight: 68 kg

DRUGS (4)
  1. TAVOR (LORAZEPAM) [Suspect]
     Active Substance: LORAZEPAM
     Indication: PRODUCT USED FOR UNKNOWN INDICATION
     Dosage: 4 MG, (SINGLE DOSE)
     Route: 048
     Dates: start: 20180505, end: 20180505
  2. PROMETHAZINE [Suspect]
     Active Substance: PROMETHAZINE\PROMETHAZINE HYDROCHLORIDE
     Indication: PRODUCT USED FOR UNKNOWN INDICATION
     Dosage: 50 MG, (SINGLE DOSE)
     Route: 048
     Dates: start: 20180505, end: 20180505
  3. ZOPICLON HEXAL [Suspect]
     Active Substance: ZOPICLONE
     Indication: PRODUCT USED FOR UNKNOWN INDICATION
     Dosage: 30 MG, (SINGLE DOSE)
     Route: 048
     Dates: start: 20180505, end: 20180505
  4. QUETIAPINA TAD [Suspect]
     Active Substance: QUETIAPINE FUMARATE
     Indication: PRODUCT USED FOR UNKNOWN INDICATION
     Dosage: 400 MG, (SINGLE DOSE)
     Route: 048
     Dates: start: 20180505, end: 20180505

REACTIONS (4)
  - Vertigo [Unknown]
  - Feeling abnormal [Unknown]
  - Fatigue [Unknown]
  - Suicidal ideation [Unknown]

NARRATIVE: CASE EVENT DATE: 20180505
